FAERS Safety Report 11173314 (Version 3)
Quarter: 2015Q4

REPORT INFORMATION
  Report Type: Other
  Country: IT (occurrence: IT)
  Receive Date: 20150608
  Receipt Date: 20151230
  Transmission Date: 20160304
  Serious: Yes (Other)
  Sender: FDA-Public Use
  Company Number: IT-MYLANLABS-2015M1017636

PATIENT

DRUGS (5)
  1. NIFEDIPINE. [Suspect]
     Active Substance: NIFEDIPINE
     Indication: PRE-ECLAMPSIA
     Dosage: 40 MG, QD
     Route: 048
     Dates: start: 20150522, end: 20150523
  2. AMPICILLIN [Concomitant]
     Active Substance: AMPICILLIN
     Indication: CULTURE URINE POSITIVE
     Dosage: 2 G
     Route: 042
     Dates: start: 20150523, end: 20150523
  3. DINOPROSTONE. [Concomitant]
     Active Substance: DINOPROSTONE
     Indication: LABOUR INDUCTION
     Dosage: 10 MG
     Route: 067
     Dates: start: 20150523, end: 20150523
  4. CALCIUM [Suspect]
     Active Substance: CALCIUM
     Indication: PRE-ECLAMPSIA
     Dosage: 1 G, QD
     Route: 048
     Dates: start: 20150519, end: 20150523
  5. METILDOPA [Interacting]
     Active Substance: METHYLDOPA
     Indication: PRE-ECLAMPSIA
     Dosage: 2 G, QD
     Route: 048
     Dates: start: 20150519, end: 20150523

REACTIONS (5)
  - Drug interaction [Recovering/Resolving]
  - Erythema [Recovering/Resolving]
  - Sopor [Recovering/Resolving]
  - Maternal exposure during pregnancy [Unknown]
  - Procedural hypotension [Recovering/Resolving]

NARRATIVE: CASE EVENT DATE: 201505
